FAERS Safety Report 6318049-0 (Version None)
Quarter: 2009Q3

REPORT INFORMATION
  Report Type: 
  Country: None (occurrence: None)
  Receive Date: 20090821
  Receipt Date: 20090813
  Transmission Date: 20100115
  Serious: No
  Sender: FDA-Public Use
  Company Number: US-EISAI INC.-E3810-03064-SPO-US

PATIENT
  Sex: Male

DRUGS (2)
  1. ACIPHEX [Suspect]
     Route: 048
     Dates: start: 20060101, end: 20090101
  2. CLOPIDOGREL [Concomitant]

REACTIONS (1)
  - CORONARY ARTERIAL STENT INSERTION [None]
